FAERS Safety Report 5393006-X (Version None)
Quarter: 2007Q3

REPORT INFORMATION
  Report Type: 
  Country: None (occurrence: None)
  Receive Date: 20070719
  Receipt Date: 20070705
  Transmission Date: 20080115
  Serious: No
  Sender: FDA-Public Use
  Company Number: TPA2007A01467

PATIENT
  Sex: Female

DRUGS (1)
  1. ACTOS [Suspect]
     Dosage: 45 MG, 1 IN 1 D, PER ORAL
     Route: 048

REACTIONS (2)
  - NO ADVERSE REACTION [None]
  - THERAPEUTIC PRODUCT CONTAMINATION [None]
